FAERS Safety Report 10210898 (Version 1)
Quarter: 2014Q2

REPORT INFORMATION
  Report Type: Spontaneous
  Country: US (occurrence: None)
  Receive Date: 20140528
  Receipt Date: 20140528
  Transmission Date: 20141212
  Serious: Yes (Death)
  Sender: FDA-Public Use
  Company Number: UNT-2014-000655

PATIENT
  Age: 48 Year
  Sex: Female
  Weight: 49.9 kg

DRUGS (3)
  1. TYVASO [Suspect]
     Indication: COR PULMONALE CHRONIC
     Route: 055
     Dates: start: 20140108
  2. LETAIRIS (AMBRISENTAN) [Concomitant]
  3. REVATIO (SILDENAFIL CITRATE) (SILDENAFIL CITRATE) [Concomitant]

REACTIONS (1)
  - Death [None]
